FAERS Safety Report 5956634-6 (Version None)
Quarter: 2008Q4

REPORT INFORMATION
  Report Type: 
  Country: None (occurrence: None)
  Receive Date: 20081118
  Receipt Date: 20081111
  Transmission Date: 20090506
  Serious: Yes (Hospitalization)
  Sender: FDA-Public Use
  Company Number: JP-MERCK-0810USA02534

PATIENT
  Age: 78 Year
  Sex: Male
  Weight: 56 kg

DRUGS (8)
  1. HYZAAR [Suspect]
     Indication: HYPERTENSION
     Route: 048
     Dates: start: 20080501, end: 20081016
  2. ARTIST [Concomitant]
     Indication: HYPERTENSION
     Route: 048
     Dates: start: 20080117
  3. PERINDOPRIL ERBUMINE [Suspect]
     Indication: HYPERTENSION
     Route: 048
     Dates: start: 20080731, end: 20081016
  4. PLETAL [Concomitant]
     Indication: HYPERTENSION
     Route: 048
     Dates: start: 20080731
  5. MAGNESIUM OXIDE [Concomitant]
     Indication: CONSTIPATION
     Route: 048
  6. MYSLEE [Concomitant]
     Indication: INSOMNIA
     Route: 048
  7. LOXONIN [Concomitant]
     Indication: BACK PAIN
     Route: 048
  8. MUCOSTA [Concomitant]
     Indication: BACK PAIN
     Route: 048

REACTIONS (2)
  - DIARRHOEA [None]
  - INAPPROPRIATE ANTIDIURETIC HORMONE SECRETION [None]
